FAERS Safety Report 24747071 (Version 1)
Quarter: 2024Q4

REPORT INFORMATION
  Report Type: Spontaneous
  Country: FR (occurrence: FR)
  Receive Date: 20241218
  Receipt Date: 20241218
  Transmission Date: 20250115
  Serious: Yes (Other)
  Sender: ROCHE
  Company Number: None

PATIENT
  Age: 26 Year
  Sex: Male
  Weight: 59 kg

DRUGS (12)
  1. VALGANCICLOVIR HYDROCHLORIDE [Suspect]
     Active Substance: VALGANCICLOVIR HYDROCHLORIDE
     Indication: Cytomegalovirus infection
     Route: 065
     Dates: start: 20241010, end: 20241104
  2. AZITHROMYCIN [Suspect]
     Active Substance: AZITHROMYCIN
     Indication: Atypical mycobacterial infection
     Dosage: EVERY 1 DAY
     Route: 065
     Dates: start: 20241030
  3. CEFTRIAXONE [Concomitant]
     Active Substance: CEFTRIAXONE
     Indication: Septic shock
     Route: 065
     Dates: start: 20241011, end: 20241011
  4. BIKTARVY [Concomitant]
     Active Substance: BICTEGRAVIR SODIUM\EMTRICITABINE\TENOFOVIR ALAFENAMIDE FUMARATE
     Indication: Product used for unknown indication
     Dosage: EVERY 1 DAY
     Route: 065
     Dates: start: 20241001, end: 20241030
  5. BACTRIM [Concomitant]
     Active Substance: SULFAMETHOXAZOLE\TRIMETHOPRIM
     Indication: Antibiotic prophylaxis
     Dosage: EVERY 1 DAY
     Route: 065
     Dates: start: 20241001
  6. RIFAMPIN [Concomitant]
     Active Substance: RIFAMPIN
     Indication: Atypical mycobacterial infection
     Dosage: EVERY 1 DAY
     Route: 065
     Dates: start: 20241030
  7. ETHAMBUTOL HYDROCHLORIDE [Concomitant]
     Active Substance: ETHAMBUTOL HYDROCHLORIDE
     Indication: Atypical mycobacterial infection
     Dosage: EVERY 1 DAY
     Route: 065
     Dates: start: 20241030
  8. TRUVADA [Concomitant]
     Active Substance: EMTRICITABINE\TENOFOVIR DISOPROXIL FUMARATE
     Indication: Product used for unknown indication
     Dosage: EVERY 1 DAY
     Route: 065
     Dates: start: 20241030
  9. DOLUTEGRAVIR [Concomitant]
     Active Substance: DOLUTEGRAVIR
     Indication: Product used for unknown indication
     Dosage: EVERY 1 DAY
     Route: 065
     Dates: start: 20241030
  10. FUNGIZONE [Concomitant]
     Active Substance: AMPHOTERICIN B
     Indication: Product used for unknown indication
     Dosage: 1 APPLICATION 2 TO 3 TIMES A DAY FOR 2 TO 4 WEEKS
     Route: 065
  11. ECONAZOLE [Concomitant]
     Active Substance: ECONAZOLE
     Indication: Product used for unknown indication
     Dosage: 2 APPLICATIONS PER DAY
     Route: 065
  12. Ketoderm [Concomitant]
     Indication: Product used for unknown indication
     Dosage: 1 APPLICATION TWICE A WEEK FOR 1 MONTH
     Route: 065

REACTIONS (2)
  - Neutropenia [Recovering/Resolving]
  - Cytopenia [Unknown]

NARRATIVE: CASE EVENT DATE: 20241112
